FAERS Safety Report 8768469 (Version 2)
Quarter: 2015Q2

REPORT INFORMATION
  Report Type: Report from Study
  Country: US (occurrence: US)
  Receive Date: 20120905
  Receipt Date: 20150624
  Transmission Date: 20150821
  Serious: Yes (Death)
  Sender: FDA-Public Use
  Company Number: US-ROCHE-1110149

PATIENT
  Sex: Female
  Weight: 56 kg

DRUGS (20)
  1. KYTRIL [Concomitant]
     Active Substance: GRANISETRON HYDROCHLORIDE
     Route: 065
  2. PROCRIT [Concomitant]
     Active Substance: ERYTHROPOIETIN
     Dosage: 40000 UNITS
     Route: 058
  3. TARCEVA [Suspect]
     Active Substance: ERLOTINIB HYDROCHLORIDE
     Route: 048
     Dates: end: 20061218
  4. ALOXI [Concomitant]
     Active Substance: PALONOSETRON HYDROCHLORIDE
     Route: 065
  5. TARCEVA [Suspect]
     Active Substance: ERLOTINIB HYDROCHLORIDE
     Indication: BREAST CANCER FEMALE
     Route: 048
  6. CARBOPLATIN. [Concomitant]
     Active Substance: CARBOPLATIN
     Dosage: AUC -1
     Route: 065
  7. AVASTIN [Suspect]
     Active Substance: BEVACIZUMAB
     Indication: BREAST CANCER METASTATIC
     Dosage: 18/DEC/2006
     Route: 042
  8. SULFAMETHOXAZOLE/TRIMETHOPRIM [Concomitant]
     Active Substance: SULFAMETHOXAZOLE\TRIMETHOPRIM
     Route: 065
  9. DILAUDID [Concomitant]
     Active Substance: HYDROMORPHONE HYDROCHLORIDE
     Route: 065
  10. GEMCITABINE [Concomitant]
     Active Substance: GEMCITABINE\GEMCITABINE HYDROCHLORIDE
     Route: 065
  11. GEMCITABINE [Concomitant]
     Active Substance: GEMCITABINE\GEMCITABINE HYDROCHLORIDE
     Route: 065
  12. ATIVAN [Concomitant]
     Active Substance: LORAZEPAM
     Route: 065
  13. KEFLEX [Concomitant]
     Active Substance: CEPHALEXIN
     Route: 048
  14. ZOFRAN [Concomitant]
     Active Substance: ONDANSETRON HYDROCHLORIDE
  15. CIPROFLOXACIN. [Concomitant]
     Active Substance: CIPROFLOXACIN
  16. AVASTIN [Suspect]
     Active Substance: BEVACIZUMAB
     Route: 042
  17. AVASTIN [Suspect]
     Active Substance: BEVACIZUMAB
     Route: 042
     Dates: start: 20060117
  18. GEMCITABINE [Concomitant]
     Active Substance: GEMCITABINE\GEMCITABINE HYDROCHLORIDE
     Route: 065
  19. ZOMETA [Concomitant]
     Active Substance: ZOLEDRONIC ACID
     Route: 065
  20. SENOKOT [Concomitant]
     Active Substance: SENNOSIDES

REACTIONS (17)
  - Nausea [Recovering/Resolving]
  - Platelet count decreased [Unknown]
  - Off label use [Unknown]
  - Dizziness [Unknown]
  - Paraesthesia [Unknown]
  - Dyspnoea [Unknown]
  - Vertigo [Unknown]
  - Dyspnoea exertional [Unknown]
  - Pleural effusion [Unknown]
  - Death [Fatal]
  - Fatigue [Unknown]
  - Hypoaesthesia [Unknown]
  - Pain [Unknown]
  - Cough [Unknown]
  - Weight increased [Unknown]
  - Labyrinthitis [Unknown]
  - Asthenia [Unknown]
